FAERS Safety Report 7728857-7 (Version None)
Quarter: 2011Q3

REPORT INFORMATION
  Report Type: 
  Country: None (occurrence: None)
  Receive Date: 20110906
  Receipt Date: 20110901
  Transmission Date: 20111222
  Serious: Yes (Other)
  Sender: FDA-Public Use
  Company Number: US-AMGEN-USASP2011025288

PATIENT
  Age: 28 Year
  Sex: Female

DRUGS (3)
  1. NPLATE [Suspect]
     Indication: THROMBOTIC THROMBOCYTOPENIC PURPURA
     Route: 058
     Dates: start: 20101108
  2. PRENATAL VITAMINS                  /01549301/ [Concomitant]
     Indication: PREGNANCY
     Dosage: 1 UNK, QD
     Route: 048
  3. FOLIC ACID [Concomitant]
     Indication: PREGNANCY
     Dosage: 1 MG, QD
     Dates: start: 20110301

REACTIONS (1)
  - THROMBOCYTOSIS [None]
